FAERS Safety Report 16104956 (Version 2)
Quarter: 2019Q3

REPORT INFORMATION
  Report Type: Spontaneous
  Country: US (occurrence: US)
  Receive Date: 20190322
  Receipt Date: 20190717
  Transmission Date: 20191004
  Serious: No
  Sender: FDA-Public Use
  Company Number: US-JNJFOC-20190217687

PATIENT
  Age: 58 Year
  Sex: Female

DRUGS (2)
  1. VENCLEXTA [Suspect]
     Active Substance: VENETOCLAX
     Indication: CHRONIC LYMPHOCYTIC LEUKAEMIA
     Route: 048
     Dates: start: 20180204
  2. IMBRUVICA [Suspect]
     Active Substance: IBRUTINIB
     Indication: CHRONIC LYMPHOCYTIC LEUKAEMIA
     Route: 048
     Dates: start: 201901

REACTIONS (10)
  - Diarrhoea [Recovering/Resolving]
  - Muscle spasms [Unknown]
  - Petechiae [Unknown]
  - Epistaxis [Unknown]
  - Skin atrophy [Unknown]
  - Adverse drug reaction [Unknown]
  - Fatigue [Unknown]
  - Gingival bleeding [Unknown]
  - Myalgia [Unknown]
  - Increased tendency to bruise [Unknown]

NARRATIVE: CASE EVENT DATE: 201901
